FAERS Safety Report 12874712 (Version 1)
Quarter: 2016Q4

REPORT INFORMATION
  Report Type: Spontaneous
  Country: US (occurrence: US)
  Receive Date: 20161021
  Receipt Date: 20161021
  Transmission Date: 20170207
  Serious: Yes (Other)
  Sender: FDA-Public Use
  Company Number: US-JNJFOC-20161012706

PATIENT
  Age: 24 Month
  Sex: Male
  Weight: 14.97 kg

DRUGS (2)
  1. CHILDRENS ZYRTEC ALLERGY [Suspect]
     Active Substance: CETIRIZINE HYDROCHLORIDE
     Indication: URTICARIA
     Dosage: MORE THAN HALF TEASPOON DOSE
     Route: 048
     Dates: start: 2016, end: 2016
  2. CHILDRENS ZYRTEC ALLERGY [Suspect]
     Active Substance: CETIRIZINE HYDROCHLORIDE
     Route: 048

REACTIONS (7)
  - Off label use [Unknown]
  - Staring [Not Recovered/Not Resolved]
  - Fatigue [Recovered/Resolved]
  - Incorrect dose administered [Not Recovered/Not Resolved]
  - Somnolence [Recovered/Resolved]
  - Seizure [Not Recovered/Not Resolved]
  - Product use issue [Unknown]
